FAERS Safety Report 11767619 (Version 1)
Quarter: 2015Q4

REPORT INFORMATION
  Report Type: Spontaneous
  Country: JP (occurrence: JP)
  Receive Date: 20151123
  Receipt Date: 20151123
  Transmission Date: 20160304
  Serious: Yes (Other)
  Sender: FDA-Public Use
  Company Number: JP-GLAXOSMITHKLINE-JP2015JPN163653

PATIENT
  Age: 30 Year
  Sex: Female

DRUGS (1)
  1. LAMICTAL [Suspect]
     Active Substance: LAMOTRIGINE
     Route: 048

REACTIONS (20)
  - Abnormal sensation in eye [Unknown]
  - Lip erosion [Unknown]
  - Retinitis [Unknown]
  - Genital blister [Unknown]
  - Pyrexia [Unknown]
  - Conjunctival hyperaemia [Unknown]
  - Oropharyngeal pain [Unknown]
  - Blister [Unknown]
  - Eye discharge [Unknown]
  - Visual acuity reduced [Unknown]
  - Erythema [Unknown]
  - Lymph node pain [Unknown]
  - Genital labial adhesions [Unknown]
  - Toxic epidermal necrolysis [Unknown]
  - Corneal epithelium defect [Unknown]
  - Vulval ulceration [Unknown]
  - Oral mucosa erosion [Unknown]
  - Epidermal necrosis [Unknown]
  - Skin lesion [Unknown]
  - Corneal erosion [Unknown]
